FAERS Safety Report 5238681-5 (Version None)
Quarter: 2007Q1

REPORT INFORMATION
  Report Type: 
  Country: None (occurrence: None)
  Receive Date: 20070214
  Receipt Date: 20070214
  Transmission Date: 20070707
  Serious: Yes (Hospitalization)
  Sender: FDA-Public Use
  Company Number: None

PATIENT
  Age: 64 Year
  Sex: Male
  Weight: 133.8111 kg

DRUGS (4)
  1. DILTIAZEM [Suspect]
     Indication: HYPERTENSION
     Dosage: 360 MG DAILY
     Dates: start: 20020101, end: 20061011
  2. FUROSEMIDE [Suspect]
     Indication: CARDIAC FAILURE CONGESTIVE
     Dosage: SEE IMAGE
     Dates: start: 20030601, end: 20061011
  3. LISINOPRIL [Suspect]
     Dosage: 40 MG DAILY
     Dates: start: 20000101
  4. METOLAZONE [Suspect]
     Dosage: 5 MG DAILY
     Dates: start: 20051101, end: 20061011

REACTIONS (3)
  - FALL [None]
  - HYPOTENSION [None]
  - LOSS OF CONSCIOUSNESS [None]
